FAERS Safety Report 22381800 (Version 1)
Quarter: 2023Q2

REPORT INFORMATION
  Report Type: Spontaneous
  Country: US (occurrence: US)
  Receive Date: 20230530
  Receipt Date: 20230530
  Transmission Date: 20230722
  Serious: No
  Sender: FDA-Public Use
  Company Number: US-002147023-NVSC2023US114803

PATIENT

DRUGS (2)
  1. AIMOVIG [Suspect]
     Active Substance: ERENUMAB-AOOE
     Indication: Migraine
     Dosage: UNK
     Route: 065
  2. TIMOLOL [Suspect]
     Active Substance: TIMOLOL
     Indication: Migraine
     Dosage: UNK
     Route: 065

REACTIONS (5)
  - Migraine [Unknown]
  - General physical health deterioration [Unknown]
  - Quality of life decreased [Unknown]
  - Drug intolerance [Unknown]
  - Treatment failure [Unknown]
